FAERS Safety Report 13329912 (Version 2)
Quarter: 2017Q1

REPORT INFORMATION
  Report Type: Spontaneous
  Country: CN (occurrence: CN)
  Receive Date: 20170313
  Receipt Date: 20170314
  Transmission Date: 20170428
  Serious: Yes (Hospitalization, Other)
  Sender: FDA-Public Use
  Company Number: PHHY2017CN036598

PATIENT
  Age: 47 Year
  Sex: Male
  Weight: 88 kg

DRUGS (4)
  1. NIFEDIPINE. [Suspect]
     Active Substance: NIFEDIPINE
     Indication: HYPERTENSION
     Dosage: 30 MG, BID
     Route: 048
  2. AMLODIPINE [Suspect]
     Active Substance: AMLODIPINE BESYLATE
     Indication: HYPERTENSION
     Dosage: 1 DF, BID (5 MG AMLODIPIN, 80 MG VALSARTAN)
     Route: 048
  3. AMLODIPINE BESYLATE. [Suspect]
     Active Substance: AMLODIPINE BESYLATE
     Indication: HYPERTENSION
     Dosage: 50 MG, BID
     Route: 048
  4. VALSARTAN. [Suspect]
     Active Substance: VALSARTAN
     Indication: HYPERTENSION
     Dosage: 80 MG, BID
     Route: 048

REACTIONS (23)
  - Chronic kidney disease [Unknown]
  - Discomfort [Unknown]
  - Decreased appetite [Recovering/Resolving]
  - Diabetic retinopathy [Unknown]
  - Hypoaesthesia [Unknown]
  - Asthenia [Recovering/Resolving]
  - Nausea [Recovering/Resolving]
  - Pericardial effusion [Unknown]
  - Nephrogenic anaemia [Unknown]
  - Diarrhoea [Recovering/Resolving]
  - Protein urine present [Unknown]
  - Left atrial enlargement [Unknown]
  - Oedema peripheral [Unknown]
  - Hypertensive nephropathy [Unknown]
  - Hyperparathyroidism secondary [Unknown]
  - Hypertension [Unknown]
  - Anaemia [Unknown]
  - Left ventricular hypertrophy [Unknown]
  - Left ventricular dysfunction [Unknown]
  - Cerebral infarction [Unknown]
  - Blood creatinine increased [Recovering/Resolving]
  - Renal injury [Unknown]
  - Face oedema [Unknown]

NARRATIVE: CASE EVENT DATE: 201501
